FAERS Safety Report 15261554 (Version 3)
Quarter: 2018Q4

REPORT INFORMATION
  Report Type: Spontaneous
  Country: PL (occurrence: PL)
  Receive Date: 20180809
  Receipt Date: 20181023
  Transmission Date: 20190204
  Serious: Yes (Other)
  Sender: FDA-Public Use
  Company Number: PL-MARINA BIOTECH, INC.-2018MARINA000524

PATIENT

DRUGS (5)
  1. CLARZOLE [Concomitant]
     Active Substance: LETROZOLE
     Indication: BREAST CANCER
     Dosage: 2.5 MG, UNK
     Dates: start: 2015
  2. CALPEROS                           /00944201/ [Concomitant]
     Indication: OSTEOPOROSIS
     Dosage: UNK
     Dates: start: 201801
  3. NEOMAG SKURCZ [Concomitant]
     Indication: PRODUCT USED FOR UNKNOWN INDICATION
     Dosage: UNK, PRN
  4. CO-PRESTARIUM [Suspect]
     Active Substance: AMLODIPINE\PERINDOPRIL
     Dosage: 1 (5MG/5MG) TABLET, QD
     Route: 048
     Dates: start: 2016
  5. CO-PRESTARIUM [Suspect]
     Active Substance: AMLODIPINE\PERINDOPRIL
     Indication: HYPERTENSION
     Dosage: 1 (5MG/10MG) TABLET, QD
     Route: 048
     Dates: start: 2015, end: 2016

REACTIONS (4)
  - Osteoporosis [Not Recovered/Not Resolved]
  - Oedema peripheral [Recovering/Resolving]
  - Somnolence [Recovered/Resolved]
  - Metastases to lung [Not Recovered/Not Resolved]

NARRATIVE: CASE EVENT DATE: 2015
